FAERS Safety Report 17353064 (Version 1)
Quarter: 2020Q1

REPORT INFORMATION
  Report Type: Report from Study
  Country: CA (occurrence: CA)
  Receive Date: 20200131
  Receipt Date: 20200131
  Transmission Date: 20200409
  Serious: Yes (Other)
  Sender: FDA-Public Use
  Company Number: CA-PFIZER INC-2020036343

PATIENT
  Age: 46 Year
  Sex: Female

DRUGS (2)
  1. MEPOLIZUMAB [Suspect]
     Active Substance: MEPOLIZUMAB
     Indication: ASTHMA
     Dosage: 100 MG, UNK
     Route: 042
  2. ADVIL [Suspect]
     Active Substance: IBUPROFEN
     Indication: PAIN
     Dosage: UNK
     Route: 065

REACTIONS (12)
  - Headache [Unknown]
  - Myalgia [Unknown]
  - Pneumonia [Unknown]
  - Dyspnoea [Unknown]
  - Cough [Unknown]
  - Heart rate increased [Unknown]
  - Back pain [Unknown]
  - Drug ineffective [Unknown]
  - Product dose omission [Unknown]
  - Musculoskeletal chest pain [Unknown]
  - Malaise [Unknown]
  - Pyrexia [Unknown]
